FAERS Safety Report 24881007 (Version 2)
Quarter: 2025Q1

REPORT INFORMATION
  Report Type: Report from Study
  Country: ES (occurrence: ES)
  Receive Date: 20250124
  Receipt Date: 20250201
  Transmission Date: 20250408
  Serious: Yes (Death)
  Sender: AUROBINDO
  Company Number: ES-ARISTO PHARMA-AMLO202412261

PATIENT
  Age: 67 Year
  Sex: Male

DRUGS (5)
  1. AMLODIPINE [Suspect]
     Active Substance: AMLODIPINE BESYLATE
     Indication: Squamous cell carcinoma
     Route: 065
  2. FUROSEMIDE [Suspect]
     Active Substance: FUROSEMIDE
     Indication: Squamous cell carcinoma
     Route: 065
  3. ACETAZOLAMIDE [Suspect]
     Active Substance: ACETAZOLAMIDE
     Indication: Squamous cell carcinoma
     Route: 065
  4. MANNITOL [Suspect]
     Active Substance: MANNITOL
     Indication: Squamous cell carcinoma
     Route: 065
  5. DEXAMETHASONE [Suspect]
     Active Substance: DEXAMETHASONE
     Indication: Squamous cell carcinoma
     Route: 065

REACTIONS (3)
  - Hyperglycaemia [Fatal]
  - Blood pressure fluctuation [Fatal]
  - Lymphoedema [Fatal]
